FAERS Safety Report 12740800 (Version 1)
Quarter: 2016Q3

REPORT INFORMATION
  Report Type: Report from Study
  Country: US (occurrence: US)
  Receive Date: 20160914
  Receipt Date: 20160914
  Transmission Date: 20161109
  Serious: Yes (Death, Hospitalization, Other)
  Sender: FDA-Public Use
  Company Number: US-ROCHE-783389

PATIENT
  Age: 68 Year
  Sex: Female
  Weight: 87.7 kg

DRUGS (5)
  1. ZOLOFT [Concomitant]
     Active Substance: SERTRALINE HYDROCHLORIDE
  2. ALLOPURINOL. [Concomitant]
     Active Substance: ALLOPURINOL
     Route: 065
  3. TEMSIROLIMUS [Suspect]
     Active Substance: TEMSIROLIMUS
     Indication: CARCINOID TUMOUR
     Dosage: ON DAYS 1,8, 15, 22, LAST ADMINISTRATION DATE OF IND: 08 APRIL 2010
     Route: 042
  4. K CITRATE [Concomitant]
  5. BEVACIZUMAB [Suspect]
     Active Substance: BEVACIZUMAB
     Indication: CARCINOID TUMOUR
     Dosage: OVER 30-90 MIN ON DAYS 1 AND 15, LAST ADMINISTRATION DATE OF IND: 08/JUL/2010
     Route: 042
     Dates: start: 20100401

REACTIONS (3)
  - Rash maculo-papular [Unknown]
  - Large intestine perforation [Fatal]
  - Fatigue [Unknown]

NARRATIVE: CASE EVENT DATE: 20100727
